FAERS Safety Report 4586728-1 (Version None)
Quarter: 2005Q1

REPORT INFORMATION
  Report Type: 
  Country: None (occurrence: None)
  Receive Date: 20050217
  Receipt Date: 20050217
  Transmission Date: 20050727
  Serious: No
  Sender: FDA-Public Use
  Company Number: None

PATIENT
  Age: 67 Year
  Sex: Male
  Weight: 125.1928 kg

DRUGS (1)
  1. GABAPENTIN 300 MG PO Q HS [Suspect]
     Indication: RADICULAR PAIN
     Dosage: 300 MG PO Q HS
     Route: 048
     Dates: start: 20040322

REACTIONS (2)
  - ABDOMINAL DISCOMFORT [None]
  - NAUSEA [None]
